FAERS Safety Report 9117825 (Version 2)
Quarter: 2013Q2

REPORT INFORMATION
  Report Type: Spontaneous
  Country: PL (occurrence: PL)
  Receive Date: 20130225
  Receipt Date: 20130424
  Transmission Date: 20140414
  Serious: Yes (Other)
  Sender: FDA-Public Use
  Company Number: PL-BRISTOL-MYERS SQUIBB COMPANY-17387515

PATIENT
  Age: 49 Year
  Sex: Male

DRUGS (1)
  1. SPRYCEL [Suspect]
     Indication: CHRONIC MYELOID LEUKAEMIA
     Dosage: DOSE REDUCED:80MG/D?DOSE REDUCED:50MG/D
     Dates: start: 20100121

REACTIONS (3)
  - Leiomyoma [Unknown]
  - Orbital oedema [Recovered/Resolved]
  - Cough [Unknown]
